FAERS Safety Report 6076790-1 (Version None)
Quarter: 2009Q1

REPORT INFORMATION
  Report Type: 
  Country: None (occurrence: None)
  Receive Date: 20090213
  Receipt Date: 20090205
  Transmission Date: 20090719
  Serious: Yes (Other)
  Sender: FDA-Public Use
  Company Number: US-BIOGENIDEC-2008BI028742

PATIENT
  Age: 51 Year
  Sex: Female

DRUGS (4)
  1. AVONEX [Suspect]
     Indication: MULTIPLE SCLEROSIS
     Route: 030
     Dates: end: 20080901
  2. CELEBREX [Concomitant]
  3. SONATA [Concomitant]
  4. MECLIZINE [Concomitant]

REACTIONS (1)
  - SPASMODIC DYSPHONIA [None]
